FAERS Safety Report 13546187 (Version 1)
Quarter: 2017Q2

REPORT INFORMATION
  Report Type: Report from Study
  Country: BR (occurrence: BR)
  Receive Date: 20170515
  Receipt Date: 20170515
  Transmission Date: 20170830
  Serious: Yes (Other)
  Sender: FDA-Public Use
  Company Number: BR-UCBSA-2017018218

PATIENT
  Sex: Female
  Weight: 84 kg

DRUGS (4)
  1. PREDNISOLONE. [Concomitant]
     Active Substance: PREDNISOLONE
     Indication: PAIN
     Dosage: UNK
     Route: 048
     Dates: start: 2007
  2. NIMESULIDE [Concomitant]
     Active Substance: NIMESULIDE
     Indication: PAIN
     Dosage: UNK
     Route: 048
     Dates: start: 2007
  3. ARAVA [Concomitant]
     Active Substance: LEFLUNOMIDE
     Indication: PAIN
     Dosage: UNK
     Route: 048
     Dates: start: 2007
  4. CERTOLIZUMAB PEGOL [Suspect]
     Active Substance: CERTOLIZUMAB PEGOL
     Indication: RHEUMATOID ARTHRITIS
     Dosage: 400 MG, EV 15 DAYS
     Dates: end: 201611

REACTIONS (1)
  - Infection [Not Recovered/Not Resolved]
